FAERS Safety Report 16569687 (Version 1)
Quarter: 2019Q3

REPORT INFORMATION
  Report Type: Spontaneous
  Country: JP (occurrence: JP)
  Receive Date: 20190715
  Receipt Date: 20190715
  Transmission Date: 20191004
  Serious: Yes (Hospitalization, Other)
  Sender: FDA-Public Use
  Company Number: JP-LUPIN PHARMACEUTICALS INC.-2019-04394

PATIENT
  Age: 44 Year
  Sex: Female
  Weight: 59 kg

DRUGS (1)
  1. ATORVASTATIN CALCIUM. [Suspect]
     Active Substance: ATORVASTATIN CALCIUM
     Indication: HYPERCHOLESTEROLAEMIA
     Dosage: 5 MILLIGRAM, QD
     Route: 048
     Dates: start: 201712

REACTIONS (3)
  - Drug-induced liver injury [Recovered/Resolved]
  - Hepatitis cholestatic [Recovered/Resolved]
  - Antimitochondrial antibody positive [Recovered/Resolved]

NARRATIVE: CASE EVENT DATE: 201810
